FAERS Safety Report 12369890 (Version 2)
Quarter: 2016Q2

REPORT INFORMATION
  Report Type: Spontaneous
  Country: ZA (occurrence: ZA)
  Receive Date: 20160516
  Receipt Date: 20160602
  Transmission Date: 20160815
  Serious: Yes (Life-Threatening, Hospitalization, Other)
  Sender: FDA-Public Use
  Company Number: US-ASTRAZENECA-2016SE51618

PATIENT
  Age: 0 Year
  Sex: Female
  Weight: 5.9 kg

DRUGS (4)
  1. SYNAGIS [Suspect]
     Active Substance: PALIVIZUMAB
     Indication: PRODUCT USED FOR UNKNOWN INDICATION
     Route: 030
     Dates: start: 20160428
  2. SYNAGIS [Suspect]
     Active Substance: PALIVIZUMAB
     Indication: PRODUCT USED FOR UNKNOWN INDICATION
     Route: 030
     Dates: start: 20160426, end: 20160426
  3. SYNAGIS [Suspect]
     Active Substance: PALIVIZUMAB
     Indication: PRODUCT USED FOR UNKNOWN INDICATION
     Route: 030
  4. SYNAGIS [Suspect]
     Active Substance: PALIVIZUMAB
     Indication: PRODUCT USED FOR UNKNOWN INDICATION
     Route: 030
     Dates: start: 201603, end: 201603

REACTIONS (12)
  - Dysentery [Unknown]
  - Brain oedema [Unknown]
  - Diarrhoea [Unknown]
  - Hepatic function abnormal [Recovered/Resolved]
  - Prerenal failure [Recovering/Resolving]
  - Restlessness [Unknown]
  - Pyrexia [Unknown]
  - Status epilepticus [Recovering/Resolving]
  - Hypovolaemic shock [Unknown]
  - Platelet count increased [Unknown]
  - Haemolytic uraemic syndrome [Recovering/Resolving]
  - Cerebral infarction [Unknown]

NARRATIVE: CASE EVENT DATE: 2016
